FAERS Safety Report 8459013-5 (Version None)
Quarter: 2012Q2

REPORT INFORMATION
  Report Type: 
  Country: None (occurrence: None)
  Receive Date: 20120622
  Receipt Date: 20120620
  Transmission Date: 20120825
  Serious: Yes (Other)
  Sender: FDA-Public Use
  Company Number: PL-ROCHE-1075224

PATIENT
  Sex: Female
  Weight: 56 kg

DRUGS (7)
  1. DOCETAXEL [Suspect]
     Indication: BREAST CANCER
     Route: 042
     Dates: start: 20100625, end: 20101024
  2. TAMOXIFEN CITRATE [Concomitant]
  3. ANASTROZOLE [Concomitant]
  4. VINORELBINE [Concomitant]
  5. EXEMESTANE [Concomitant]
  6. ZOLADEX [Concomitant]
  7. XELODA [Suspect]
     Indication: BREAST CANCER
     Route: 048
     Dates: start: 20100625, end: 20110104

REACTIONS (11)
  - OEDEMA PERIPHERAL [None]
  - ASTHENIA [None]
  - THROMBOCYTOPENIA [None]
  - LEUKOPENIA [None]
  - PALMAR-PLANTAR ERYTHRODYSAESTHESIA SYNDROME [None]
  - NEUTROPENIA [None]
  - WEIGHT DECREASED [None]
  - GENERAL PHYSICAL HEALTH DETERIORATION [None]
  - NAIL DISORDER [None]
  - METASTASES TO LIVER [None]
  - TUMOUR MARKER INCREASED [None]
